FAERS Safety Report 24062456 (Version 3)
Quarter: 2024Q3

REPORT INFORMATION
  Report Type: Spontaneous
  Country: AT (occurrence: AT)
  Receive Date: 20240708
  Receipt Date: 20240917
  Transmission Date: 20241017
  Serious: Yes (Other)
  Sender: SANDOZ
  Company Number: None

PATIENT
  Age: 60 Year
  Sex: Female
  Weight: 80 kg

DRUGS (12)
  1. CYCLOPHOSPHAMIDE [Suspect]
     Active Substance: CYCLOPHOSPHAMIDE
     Dosage: 1594.45 MG, THE LAST DOSE PRIOR TO THE EVENT WAS IV 1594.45 MG
     Route: 042
     Dates: start: 20230201, end: 20230517
  2. CYCLOPHOSPHAMIDE [Suspect]
     Active Substance: CYCLOPHOSPHAMIDE
     Indication: Diffuse large B-cell lymphoma
     Dosage: 1599.48 MG, DAY 2
     Route: 042
     Dates: start: 20230201
  3. DOXORUBICIN HYDROCHLORIDE [Suspect]
     Active Substance: DOXORUBICIN HYDROCHLORIDE
     Indication: Diffuse large B-cell lymphoma
     Dosage: UNK
     Route: 042
     Dates: start: 20230201
  4. LENALIDOMIDE [Suspect]
     Active Substance: LENALIDOMIDE
     Dosage: 10 MG, THE LAST DOSE OF LENALIDOMIDE PRIOR TO THE EVENT WAS 10 MG.
     Route: 048
  5. LENALIDOMIDE [Suspect]
     Active Substance: LENALIDOMIDE
     Indication: Diffuse large B-cell lymphoma
     Dosage: 25 MG, QD, THE LAST DOSE OF LENALIDOMIDE PRIOR TO THE EVENT WAS 10 MG.
     Route: 048
     Dates: start: 20230201
  6. PREDNISOLONE [Suspect]
     Active Substance: PREDNISOLONE
     Indication: Diffuse large B-cell lymphoma
     Dosage: 100 MG (DAY 1-5)
     Route: 048
     Dates: start: 20230201
  7. RITUXIMAB [Suspect]
     Active Substance: RITUXIMAB
     Indication: Follicular lymphoma
     Dosage: 779.74 MG, QD, ( DAY 1)
     Route: 042
     Dates: start: 20230201
  8. RITUXIMAB [Suspect]
     Active Substance: RITUXIMAB
     Indication: Diffuse large B-cell lymphoma
     Dosage: 797.23 MG, LAST DOSE PRIOR THE EVENT
     Route: 042
  9. VINCRISTINE [Suspect]
     Active Substance: VINCRISTINE
     Indication: Diffuse large B-cell lymphoma
     Dosage: 2 MG, QOD, LAST DOSE PRIOR TO THE EVENT WAS 2 MG, DAY 1
     Route: 042
     Dates: start: 20230201
  10. VINCRISTINE [Suspect]
     Active Substance: VINCRISTINE
     Dosage: 2 MG, QOD, LAST DOSE PRIOR TO THE EVENT WAS 2 MG, DAY 1
     Route: 042
  11. TAFASITAMAB [Concomitant]
     Active Substance: TAFASITAMAB
     Indication: Diffuse large B-cell lymphoma
     Dosage: 1008 MG, LAST DOSE OF TAFASITAMAB PRIOR TO THE EVENT WAS RECEIVED ON 31-MAY-2023 AT DOSE OF 1063 MG
     Route: 042
     Dates: start: 20230201
  12. TAFASITAMAB [Concomitant]
     Active Substance: TAFASITAMAB
     Dosage: 1063 MG,LAST DOSE OF TAFASITAMAB PRIOR TO THE EVENT WAS RECEIVED ON 31-MAY-2023 AT DOSE OF 1063 MG
     Route: 042

REACTIONS (1)
  - Lung adenocarcinoma [Recovered/Resolved]

NARRATIVE: CASE EVENT DATE: 20231219
